FAERS Safety Report 5860137-7 (Version None)
Quarter: 2008Q3

REPORT INFORMATION
  Report Type: 
  Country: None (occurrence: None)
  Receive Date: 20080827
  Receipt Date: 20080819
  Transmission Date: 20090109
  Serious: Yes (Other)
  Sender: FDA-Public Use
  Company Number: TH-ABBOTT-08P-155-0472372-00

PATIENT
  Sex: Female
  Weight: 55 kg

DRUGS (4)
  1. SEVORANE [Suspect]
     Indication: DRUG USE FOR UNKNOWN INDICATION
     Dosage: RANGE 1-2%
     Route: 055
     Dates: start: 20080819, end: 20080819
  2. SUXAMETHONIUM CHLORIDE [Concomitant]
     Indication: DRUG USE FOR UNKNOWN INDICATION
  3. PAVOLON [Concomitant]
     Indication: DRUG USE FOR UNKNOWN INDICATION
  4. MORPHINE [Concomitant]
     Indication: DRUG USE FOR UNKNOWN INDICATION

REACTIONS (4)
  - HYPOTENSION [None]
  - NAUSEA [None]
  - SUPRAVENTRICULAR EXTRASYSTOLES [None]
  - VOMITING [None]
